FAERS Safety Report 4551912-X (Version None)
Quarter: 2005Q1

REPORT INFORMATION
  Report Type: 
  Country: None (occurrence: None)
  Receive Date: 20050110
  Receipt Date: 20041222
  Transmission Date: 20050727
  Serious: Yes (Death)
  Sender: FDA-Public Use
  Company Number: TCI2004A02171

PATIENT
  Age: 88 Year
  Sex: Female

DRUGS (8)
  1. ACTOS [Suspect]
     Indication: DIABETES MELLITUS NON-INSULIN-DEPENDENT
     Dosage: 15 MG (15 MG 1 D)
     Route: 048
     Dates: start: 20040506, end: 20040506
  2. VALSARTAN [Concomitant]
  3. NORVASC [Concomitant]
  4. DIGOXIN [Concomitant]
  5. BUFFERIN [Concomitant]
  6. NITROGLYCERIN [Concomitant]
  7. SPIRONOLACTONE [Concomitant]
  8. FUROSEMIDE [Concomitant]

REACTIONS (6)
  - ASTHENIA [None]
  - CARDIAC DEATH [None]
  - CARDIAC FAILURE [None]
  - CHOKING SENSATION [None]
  - CONDITION AGGRAVATED [None]
  - HYPOTONIA [None]
